FAERS Safety Report 6696995-6 (Version None)
Quarter: 2010Q2

REPORT INFORMATION
  Report Type: 
  Country: None (occurrence: None)
  Receive Date: 20100426
  Receipt Date: 20100421
  Transmission Date: 20101027
  Serious: Yes (Other)
  Sender: FDA-Public Use
  Company Number: US-BRISTOL-MYERS SQUIBB COMPANY-15073190

PATIENT
  Age: 60 Year
  Sex: Female

DRUGS (14)
  1. METFORMIN HCL [Suspect]
     Route: 065
  2. ATORVASTATIN [Suspect]
     Route: 065
  3. PLAVIX [Suspect]
     Indication: MYOCARDIAL INFARCTION
     Route: 048
     Dates: start: 19991201
  4. PLAVIX [Suspect]
     Indication: STENT PLACEMENT
     Route: 048
     Dates: start: 19991201
  5. VITAMIN D [Suspect]
     Route: 065
  6. POTASSIUM [Suspect]
     Route: 065
  7. GLIPIZIDE [Suspect]
     Route: 065
  8. ISOSORBIDE DINITRATE [Suspect]
     Route: 065
  9. ETODOLAC [Suspect]
     Route: 065
  10. METOPROLOL [Suspect]
     Route: 065
  11. CARVEDILOL [Suspect]
     Route: 065
  12. PRILOSEC [Suspect]
     Route: 065
  13. ACETAMINOPHEN AND HYDROCODONE BITARTRATE [Suspect]
  14. DIPHENHYDRAMINE HYDROCHLORIDE [Suspect]
     Route: 065

REACTIONS (9)
  - ABDOMINAL PAIN UPPER [None]
  - BACTERAEMIA [None]
  - CHEST PAIN [None]
  - DIARRHOEA [None]
  - DIZZINESS [None]
  - DYSPNOEA [None]
  - INSOMNIA [None]
  - NAUSEA [None]
  - PAIN IN EXTREMITY [None]
